FAERS Safety Report 21745145 (Version 3)
Quarter: 2023Q1

REPORT INFORMATION
  Report Type: Spontaneous
  Country: US (occurrence: None)
  Receive Date: 20221219
  Receipt Date: 20230309
  Transmission Date: 20230418
  Serious: Yes (Other)
  Sender: FDA-Public Use
  Company Number: US-ROCHE-3241619

PATIENT
  Sex: Female

DRUGS (1)
  1. OCREVUS [Suspect]
     Active Substance: OCRELIZUMAB
     Indication: Multiple sclerosis
     Dosage: YES
     Route: 042
     Dates: start: 202106

REACTIONS (8)
  - Multiple sclerosis relapse [Unknown]
  - Tremor [Unknown]
  - Gait inability [Unknown]
  - Torticollis [Unknown]
  - Dermal cyst [Unknown]
  - COVID-19 [Recovered/Resolved]
  - Paraparesis [Unknown]
  - Eye movement disorder [Unknown]

NARRATIVE: CASE EVENT DATE: 20220501
